FAERS Safety Report 8905585 (Version 1)
Quarter: 2012Q4

REPORT INFORMATION
  Report Type: 
  Country: FR (occurrence: FR)
  Receive Date: 20121113
  Receipt Date: 20121113
  Transmission Date: 20130627
  Serious: Yes (Other)
  Sender: FDA-Public Use
  Company Number: FR-ARROW-2012-19052

PATIENT
  Age: 50 Year
  Sex: Female

DRUGS (3)
  1. SODIUM VALPROATE (UNKNOWN) [Suspect]
     Indication: PARTIAL SEIZURES
     Dosage: UNK, unknown
     Route: 065
  2. LACOSAMIDE [Suspect]
     Indication: PARTIAL SEIZURES
     Dosage: UNK, unknown
     Route: 065
  3. ORLISTAT [Suspect]
     Indication: WEIGHT CONTROL
     Dosage: UNK, unknown
     Route: 065

REACTIONS (3)
  - Epilepsy [Recovered/Resolved]
  - Malnutrition [Recovered/Resolved]
  - Drug interaction [Recovered/Resolved]
